FAERS Safety Report 8792713 (Version 4)
Quarter: 2012Q4

REPORT INFORMATION
  Report Type: 
  Country: US (occurrence: US)
  Receive Date: 20120918
  Receipt Date: 20121203
  Transmission Date: 20130627
  Serious: Yes (Life-Threatening, Hospitalization)
  Sender: FDA-Public Use
  Company Number: US-GLAXOSMITHKLINE-A0993287A

PATIENT
  Age: 4 Month
  Sex: Male
  Weight: 9.1 kg

DRUGS (9)
  1. ROTARIX [Suspect]
     Indication: PROPHYLAXIS
     Dosage: 1ML Single dose
     Route: 048
     Dates: start: 20120908, end: 20120908
  2. ZANTAC [Suspect]
     Indication: GASTROOESOPHAGEAL REFLUX DISEASE
     Dosage: 22.5MG Twice per day
     Route: 048
     Dates: start: 20120706
  3. PENTACEL [Suspect]
     Indication: PROPHYLAXIS
     Route: 030
     Dates: start: 20120908, end: 20120908
  4. PREVNAR 13 [Suspect]
     Indication: PROPHYLAXIS
     Dosage: .5ML Single dose
     Route: 030
     Dates: start: 20120908, end: 20120908
  5. PENTACEL [Concomitant]
     Indication: PROPHYLAXIS
     Route: 030
     Dates: start: 20120706, end: 20120706
  6. PREVNAR [Concomitant]
     Indication: PROPHYLAXIS
     Route: 030
     Dates: start: 20120706, end: 20120706
  7. ROTARIX LYOPHILIZED FORMULATION [Concomitant]
     Indication: PROPHYLAXIS
     Route: 048
     Dates: start: 20120706, end: 20120706
  8. HEPATITIS VACCINE [Concomitant]
     Indication: PROPHYLAXIS
     Route: 065
     Dates: start: 20120507, end: 20120507
  9. HEPATITIS VACCINE [Concomitant]
     Indication: PROPHYLAXIS
     Route: 065
     Dates: start: 20120706, end: 20120706

REACTIONS (6)
  - Convulsion [Not Recovered/Not Resolved]
  - Vaccination complication [Unknown]
  - Dyskinesia [Recovered/Resolved]
  - Food aversion [Recovered/Resolved]
  - Muscle rigidity [Recovered/Resolved]
  - Staring [Recovered/Resolved]
